FAERS Safety Report 4517936-3 (Version None)
Quarter: 2004Q4

REPORT INFORMATION
  Report Type: 
  Country: None (occurrence: None)
  Receive Date: 20041203
  Receipt Date: 20041014
  Transmission Date: 20050328
  Serious: Yes (Hospitalization)
  Sender: FDA-Public Use
  Company Number: PHBS2004JP13801

PATIENT
  Age: 1 Year
  Sex: Male

DRUGS (2)
  1. ZADITEN [Suspect]
     Indication: DERMATITIS ATOPIC
     Dosage: 0.8 MG/ DAY
     Route: 048
     Dates: start: 20040921, end: 20041021
  2. STEROIDS NOS [Concomitant]
     Route: 061

REACTIONS (3)
  - CONVERSION DISORDER [None]
  - CONVULSION [None]
  - CYANOSIS [None]
